FAERS Safety Report 7459939-5 (Version None)
Quarter: 2011Q2

REPORT INFORMATION
  Report Type: 
  Country: None (occurrence: None)
  Receive Date: 20110504
  Receipt Date: 20110504
  Transmission Date: 20111010
  Serious: No
  Sender: FDA-Public Use
  Company Number: None

PATIENT
  Sex: Female
  Weight: 70.3075 kg

DRUGS (1)
  1. CRESTOR [Suspect]
     Dosage: CRESTOR 5 MG QHS PO
     Route: 048
     Dates: start: 20100901, end: 20101101

REACTIONS (3)
  - MYALGIA [None]
  - FALL [None]
  - ARTHRALGIA [None]
